FAERS Safety Report 5657751-0 (Version None)
Quarter: 2008Q1

REPORT INFORMATION
  Report Type: 
  Country: None (occurrence: None)
  Receive Date: 20080305
  Receipt Date: 20080218
  Transmission Date: 20080703
  Serious: Yes (Life-Threatening, Hospitalization)
  Sender: FDA-Public Use
  Company Number: 2008S1002685

PATIENT
  Age: 50 Year
  Sex: Female

DRUGS (6)
  1. TRAZODONE HCL [Suspect]
     Indication: DEPRESSION
     Dates: start: 20020101
  2. CETIRIZINE HCL [Concomitant]
  3. FERSAMAL /00023503/ [Concomitant]
  4. LACTULOSE [Concomitant]
  5. PARACETAMOL [Concomitant]
  6. RISPERIDONE [Concomitant]

REACTIONS (3)
  - AGRANULOCYTOSIS [None]
  - NEUTROPHIL COUNT DECREASED [None]
  - SEPSIS [None]
